FAERS Safety Report 24231978 (Version 5)
Quarter: 2025Q3

REPORT INFORMATION
  Report Type: Spontaneous
  Country: EU (occurrence: EU)
  Receive Date: 20240821
  Receipt Date: 20250804
  Transmission Date: 20251020
  Serious: Yes (Other)
  Sender: ALEXION PHARMACEUTICALS
  Company Number: None

PATIENT
  Age: 64 Year
  Sex: Female
  Weight: 80 kg

DRUGS (15)
  1. ESOMEPRAZOLE [Suspect]
     Active Substance: ESOMEPRAZOLE
     Indication: Gastrooesophageal reflux prophylaxis
     Dosage: 1 DOSAGE FORM, 1/DAY
  2. CANDESARTAN CILEXETIL [Suspect]
     Active Substance: CANDESARTAN CILEXETIL
     Indication: Hypertension
     Dosage: 1 DOSAGE FORM, 1/DAY
  3. CANDESARTAN CILEXETIL [Suspect]
     Active Substance: CANDESARTAN CILEXETIL
     Indication: Hypertension
     Dosage: 1 DOSAGE FORM, QD
  4. ATORVASTATIN [Suspect]
     Active Substance: ATORVASTATIN
     Indication: Dyslipidaemia
     Dosage: 1 DOSAGE FORM, 1/DAY
  5. CLOPIDOGREL [Suspect]
     Active Substance: CLOPIDOGREL BISULFATE
     Indication: Cardiovascular event prophylaxis
     Dosage: 1 DOSAGE FORM, 1/DAY
  6. EBASTINE [Suspect]
     Active Substance: EBASTINE
     Indication: Nasal polyps
     Dosage: 1 DOSAGE FORM, 1/DAY
  7. EBASTINE [Suspect]
     Active Substance: EBASTINE
     Indication: Nasal polyps
     Dosage: 1 DOSAGE FORM, 1/DAY
  8. EBASTINE [Suspect]
     Active Substance: EBASTINE
     Indication: Nasal polyps
     Dosage: 1 DOSAGE FORM, QD
  9. DUPIXENT [Suspect]
     Active Substance: DUPILUMAB
     Indication: Asthma
  10. DUPIXENT [Suspect]
     Active Substance: DUPILUMAB
  11. NASACORT [Suspect]
     Active Substance: TRIAMCINOLONE ACETONIDE
     Indication: Nasal polyps
     Dosage: 1 DOSAGE FORM, QD
  12. NASACORT [Suspect]
     Active Substance: TRIAMCINOLONE ACETONIDE
     Indication: Nasal polyps
     Dosage: 1 DOSAGE FORM, QD
  13. FLUTICASONE [Suspect]
     Active Substance: FLUTICASONE
     Indication: Nasal polyps
     Dosage: 1 DOSAGE FORM, 1/DAY
  14. FLUTICASONE [Suspect]
     Active Substance: FLUTICASONE
     Dosage: 1 DOSAGE FORM, 1/DAY
  15. FLUTICASONE FUROATE\VILANTEROL TRIFENATATE [Suspect]
     Active Substance: FLUTICASONE FUROATE\VILANTEROL TRIFENATATE
     Indication: Nasal polyps
     Dosage: 1 DOSAGE FORM, QD

REACTIONS (2)
  - Eczema [Not Recovered/Not Resolved]
  - Urticarial vasculitis [Not Recovered/Not Resolved]

NARRATIVE: CASE EVENT DATE: 20240601
